FAERS Safety Report 9244788 (Version 3)
Quarter: 2013Q2

REPORT INFORMATION
  Report Type: Spontaneous
  Country: JP (occurrence: JP)
  Receive Date: 20130422
  Receipt Date: 20130607
  Transmission Date: 20140414
  Serious: Yes (Death)
  Sender: FDA-Public Use
  Company Number: JP-JNJFOC-20130410544

PATIENT
  Age: 86 Year
  Sex: Male
  Weight: 63 kg

DRUGS (14)
  1. REMINYL [Suspect]
     Indication: DEMENTIA ALZHEIMER^S TYPE
     Route: 048
     Dates: end: 20130408
  2. REMINYL [Suspect]
     Indication: DEMENTIA ALZHEIMER^S TYPE
     Route: 048
     Dates: start: 20130409, end: 20130415
  3. AMLODIPINE [Concomitant]
     Indication: HYPERTENSION
     Route: 048
     Dates: end: 20130414
  4. AMLODIPINE [Concomitant]
     Indication: HYPERTENSION
     Route: 048
  5. MAINTATE [Concomitant]
     Indication: HYPERTENSION
     Route: 048
     Dates: end: 20130414
  6. OLMETEC [Concomitant]
     Indication: HYPERTENSION
     Route: 048
     Dates: end: 20130414
  7. EVIPROSTAT [Concomitant]
     Indication: HYPERTONIC BLADDER
     Route: 048
     Dates: end: 20130409
  8. EVIPROSTAT [Concomitant]
     Indication: HYPERTONIC BLADDER
     Dosage: 3 DF ONCE PER DAY
     Route: 048
     Dates: start: 20130409, end: 20130414
  9. EVIPROSTAT [Concomitant]
     Indication: BENIGN PROSTATIC HYPERPLASIA
     Route: 048
     Dates: end: 20130409
  10. EVIPROSTAT [Concomitant]
     Indication: BENIGN PROSTATIC HYPERPLASIA
     Dosage: 3 DF ONCE PER DAY
     Route: 048
     Dates: start: 20130409, end: 20130414
  11. VESICARE [Concomitant]
     Indication: HYPERTONIC BLADDER
     Route: 048
     Dates: end: 20130414
  12. VESICARE [Concomitant]
     Indication: BENIGN PROSTATIC HYPERPLASIA
     Route: 048
     Dates: end: 20130414
  13. HARNAL [Concomitant]
     Indication: HYPERTONIC BLADDER
     Route: 048
     Dates: end: 20130414
  14. HARNAL [Concomitant]
     Indication: BENIGN PROSTATIC HYPERPLASIA
     Route: 048
     Dates: end: 20130414

REACTIONS (4)
  - Aortic aneurysm rupture [Fatal]
  - Cardiac failure [Fatal]
  - Pyrexia [Fatal]
  - Pain in extremity [Unknown]
